FAERS Safety Report 13413469 (Version 2)
Quarter: 2017Q4

REPORT INFORMATION
  Report Type: Spontaneous
  Country: US (occurrence: US)
  Receive Date: 20170406
  Receipt Date: 20171123
  Transmission Date: 20180320
  Serious: No
  Sender: FDA-Public Use
  Company Number: US-JNJFOC-20170311635

PATIENT
  Sex: Male

DRUGS (10)
  1. RISPERDAL [Suspect]
     Active Substance: RISPERIDONE
     Indication: AFFECTIVE DISORDER
     Dosage: VARIABLE DOSES OF 0.25MG, 0.5 MG AND 1 MG
     Route: 048
     Dates: start: 20060831, end: 20110525
  2. RISPERDAL [Suspect]
     Active Substance: RISPERIDONE
     Indication: INTELLECTUAL DISABILITY
     Dosage: VARIABLE DOSES OF 0.25MG, 0.5 MG AND 1 MG
     Route: 048
     Dates: start: 20060831, end: 20110525
  3. RISPERDAL [Suspect]
     Active Substance: RISPERIDONE
     Indication: ANXIETY DISORDER
     Dosage: VARIABLE DOSES OF 0.25MG, 0.5 MG AND 1 MG
     Route: 048
     Dates: start: 20060831, end: 20110525
  4. RISPERIDONE. [Suspect]
     Active Substance: RISPERIDONE
     Indication: AFFECTIVE DISORDER
     Dosage: 0.5 MG AND 1 MG
     Route: 065
     Dates: start: 20090527, end: 20110504
  5. RISPERIDONE. [Suspect]
     Active Substance: RISPERIDONE
     Indication: ANXIETY DISORDER
     Dosage: 0.5 MG AND 1 MG
     Route: 065
     Dates: start: 20090527, end: 20110504
  6. RISPERDAL [Suspect]
     Active Substance: RISPERIDONE
     Indication: ATTENTION DEFICIT/HYPERACTIVITY DISORDER
     Dosage: VARIABLE DOSES OF 0.25MG, 0.5 MG AND 1 MG
     Route: 048
     Dates: start: 20060831, end: 20110525
  7. RISPERDAL [Suspect]
     Active Substance: RISPERIDONE
     Indication: DISTURBANCE IN SOCIAL BEHAVIOUR
     Dosage: VARIABLE DOSES OF 0.25MG, 0.5 MG AND 1 MG
     Route: 048
     Dates: start: 20060831, end: 20110525
  8. RISPERIDONE. [Suspect]
     Active Substance: RISPERIDONE
     Indication: INTELLECTUAL DISABILITY
     Dosage: 0.5 MG AND 1 MG
     Route: 065
     Dates: start: 20090527, end: 20110504
  9. RISPERIDONE. [Suspect]
     Active Substance: RISPERIDONE
     Indication: DISTURBANCE IN SOCIAL BEHAVIOUR
     Dosage: 0.5 MG AND 1 MG
     Route: 065
     Dates: start: 20090527, end: 20110504
  10. RISPERIDONE. [Suspect]
     Active Substance: RISPERIDONE
     Indication: ATTENTION DEFICIT/HYPERACTIVITY DISORDER
     Dosage: 0.5 MG AND 1 MG
     Route: 065
     Dates: start: 20090527, end: 20110504

REACTIONS (2)
  - Emotional disorder [Unknown]
  - Gynaecomastia [Unknown]
